FAERS Safety Report 13549265 (Version 2)
Quarter: 2017Q3

REPORT INFORMATION
  Report Type: Spontaneous
  Country: DK (occurrence: DK)
  Receive Date: 20170516
  Receipt Date: 20170703
  Transmission Date: 20171127
  Serious: Yes (Hospitalization, Disabling)
  Sender: FDA-Public Use
  Company Number: DK-ACCORD-051518

PATIENT
  Age: 59 Year
  Sex: Male

DRUGS (3)
  1. METHOTREXATE. [Suspect]
     Active Substance: METHOTREXATE
     Indication: PSORIASIS
     Dates: start: 201008, end: 201309
  2. ENBREL [Concomitant]
     Active Substance: ETANERCEPT
     Indication: PSORIASIS
     Dates: start: 200703, end: 201511
  3. STELARA [Concomitant]
     Active Substance: USTEKINUMAB
     Indication: PSORIASIS
     Dates: start: 201511

REACTIONS (8)
  - Varices oesophageal [Not Recovered/Not Resolved]
  - Hepatic cirrhosis [Not Recovered/Not Resolved]
  - Drug ineffective [Unknown]
  - Chronic hepatic failure [Not Recovered/Not Resolved]
  - Ascites [Recovered/Resolved]
  - Splenomegaly [Not Recovered/Not Resolved]
  - Liver disorder [Unknown]
  - Biliary cirrhosis [Not Recovered/Not Resolved]

NARRATIVE: CASE EVENT DATE: 201512
